FAERS Safety Report 7148626-9 (Version None)
Quarter: 2010Q4

REPORT INFORMATION
  Report Type: 
  Country: None (occurrence: None)
  Receive Date: 20101209
  Receipt Date: 20101101
  Transmission Date: 20110411
  Serious: No
  Sender: FDA-Public Use
  Company Number: A0884014A

PATIENT
  Age: 48 Year
  Sex: Female

DRUGS (5)
  1. AVANDAMET [Suspect]
     Dosage: 1000MG TWICE PER DAY
     Route: 048
     Dates: start: 20080901
  2. LEXAPRO [Concomitant]
  3. PREVACID [Concomitant]
  4. INSULIN [Concomitant]
  5. ASPIRIN [Concomitant]

REACTIONS (2)
  - ANXIETY [None]
  - PALPITATIONS [None]
